FAERS Safety Report 17223301 (Version 1)
Quarter: 2020Q1

REPORT INFORMATION
  Report Type: Spontaneous
  Country: SE (occurrence: SE)
  Receive Date: 20200102
  Receipt Date: 20200102
  Transmission Date: 20200409
  Serious: Yes (Hospitalization)
  Sender: FDA-Public Use
  Company Number: SE-TEVA-2019-SE-1160475

PATIENT
  Age: 18 Year
  Sex: Female

DRUGS (5)
  1. FLUOXETINE [Suspect]
     Active Substance: FLUOXETINE HYDROCHLORIDE
     Route: 048
     Dates: start: 20190408, end: 20190408
  2. MELATONIN [Suspect]
     Active Substance: MELATONIN
     Route: 048
     Dates: start: 20190408, end: 20190408
  3. THERALEN [Suspect]
     Active Substance: TRIMEPRAZINE
     Route: 048
     Dates: start: 20190408, end: 20190408
  4. LAMOTRIGINE. [Suspect]
     Active Substance: LAMOTRIGINE
     Route: 048
     Dates: start: 20190408, end: 20190408
  5. PROPAVAN [Suspect]
     Active Substance: PROPIOMAZINE
     Route: 048
     Dates: start: 20190408, end: 20190408

REACTIONS (3)
  - Suicidal ideation [Unknown]
  - Mydriasis [Unknown]
  - Intentional overdose [Unknown]

NARRATIVE: CASE EVENT DATE: 20190408
